FAERS Safety Report 12981039 (Version 1)
Quarter: 2016Q4

REPORT INFORMATION
  Report Type: Spontaneous
  Country: BD (occurrence: BD)
  Receive Date: 20161128
  Receipt Date: 20161128
  Transmission Date: 20170207
  Serious: Yes (Death)
  Sender: FDA-Public Use
  Company Number: BD-ROCHE-1860573

PATIENT
  Age: 31 Year
  Sex: Male

DRUGS (1)
  1. MABTHERA [Suspect]
     Active Substance: RITUXIMAB
     Indication: LEUKAEMIA
     Route: 065
     Dates: end: 20160612

REACTIONS (2)
  - Death [Fatal]
  - Off label use [Unknown]
